FAERS Safety Report 9640832 (Version 1)
Quarter: 2013Q4

REPORT INFORMATION
  Report Type: Report from Study
  Country: US (occurrence: US)
  Receive Date: 20131023
  Receipt Date: 20131023
  Transmission Date: 20140711
  Serious: No
  Sender: FDA-Public Use
  Company Number: US-ABBVIE-12P-163-1005387-00

PATIENT
  Sex: Female
  Weight: 77.18 kg

DRUGS (5)
  1. LUPRON DEPOT [Suspect]
     Indication: ENDOMETRIOSIS
     Route: 030
     Dates: start: 201208
  2. NORETHINDRONE ACETATE [Concomitant]
     Indication: PRODUCT USED FOR UNKNOWN INDICATION
     Dosage: 5 MG DAILY
     Route: 048
  3. SILICA [Concomitant]
     Indication: PRODUCT USED FOR UNKNOWN INDICATION
     Dosage: 3000 MCG DAILY
     Route: 048
  4. FISH OIL [Concomitant]
     Indication: PRODUCT USED FOR UNKNOWN INDICATION
     Dosage: 1200 MCG DAILY
     Route: 048
  5. QVC^S NATURES CODE MULTIVITAMIN PACK [Concomitant]
     Indication: PRODUCT USED FOR UNKNOWN INDICATION
     Dosage: DAILY
     Route: 048

REACTIONS (9)
  - Headache [Recovering/Resolving]
  - Hyperhidrosis [Unknown]
  - Dyspnoea [Unknown]
  - Malaise [Unknown]
  - Arthralgia [Unknown]
  - Arthralgia [Unknown]
  - Musculoskeletal stiffness [Unknown]
  - Listless [Unknown]
  - Weight increased [Unknown]
